FAERS Safety Report 16981066 (Version 2)
Quarter: 2019Q4

REPORT INFORMATION
  Report Type: Report from Study
  Country: GB (occurrence: GB)
  Receive Date: 20191031
  Receipt Date: 20191109
  Transmission Date: 20200122
  Serious: Yes (Life-Threatening, Hospitalization, Other)
  Sender: FDA-Public Use
  Company Number: GB-BRISTOL-MYERS SQUIBB COMPANY-BMS-2019-097022

PATIENT
  Age: 59 Year
  Sex: Female
  Weight: 83.3 kg

DRUGS (2)
  1. IPILIMUMAB [Suspect]
     Active Substance: IPILIMUMAB
     Indication: GLIOBLASTOMA
     Dosage: 290 MILLIGRAM, Q3WK FOR 4 DOSES
     Route: 042
     Dates: start: 20190618
  2. TEMOZOLOMIDE. [Suspect]
     Active Substance: TEMOZOLOMIDE
     Indication: GLIOBLASTOMA
     Dosage: 1 DOSAGE FORM, QD
     Route: 048
     Dates: start: 20190709

REACTIONS (2)
  - Colitis [Recovered/Resolved]
  - Large intestine perforation [Recovered/Resolved]

NARRATIVE: CASE EVENT DATE: 20191003
